FAERS Safety Report 9268720 (Version 3)
Quarter: 2013Q2

REPORT INFORMATION
  Report Type: Spontaneous
  Country: US (occurrence: US)
  Receive Date: 20130502
  Receipt Date: 20130612
  Transmission Date: 20140414
  Serious: No
  Sender: FDA-Public Use
  Company Number: US-TEVA-401997USA

PATIENT
  Sex: Male

DRUGS (9)
  1. AZILECT [Suspect]
     Indication: PARKINSON^S DISEASE
     Dates: end: 201304
  2. PROPRANOLOL [Concomitant]
  3. SELEGILINE [Concomitant]
  4. CARBIDOPA/LEVODOPA [Concomitant]
  5. LISINOPRIL [Concomitant]
     Indication: HYPERTENSION
  6. DILTIAZEM [Concomitant]
     Indication: HYPERTENSION
  7. FLOMAX [Concomitant]
     Indication: BENIGN PROSTATIC HYPERPLASIA
  8. FINASTERIDE [Concomitant]
     Indication: BENIGN PROSTATIC HYPERPLASIA
  9. AMANTADINE [Concomitant]
     Indication: PARKINSON^S DISEASE

REACTIONS (10)
  - Feeling abnormal [Unknown]
  - Headache [Unknown]
  - Hypokinesia [Unknown]
  - Tremor [Unknown]
  - Drug effect decreased [Unknown]
  - Insomnia [Unknown]
  - Mood altered [Unknown]
  - Fatigue [Unknown]
  - Drug ineffective [Not Recovered/Not Resolved]
  - Movement disorder [Unknown]
